FAERS Safety Report 5374185-7 (Version None)
Quarter: 2007Q2

REPORT INFORMATION
  Report Type: 
  Country: None (occurrence: None)
  Receive Date: 20070627
  Receipt Date: 20061117
  Transmission Date: 20071010
  Serious: Yes (Death)
  Sender: FDA-Public Use
  Company Number: 471860

PATIENT
  Age: 65 Year
  Sex: Female

DRUGS (2)
  1. XELODA [Suspect]
     Indication: BREAST CANCER METASTATIC
     Dates: start: 20050616
  2. XELODA [Suspect]
     Indication: METASTASES TO BONE
     Dates: start: 20050616

REACTIONS (1)
  - NEOPLASM MALIGNANT [None]
